FAERS Safety Report 5845434-3 (Version None)
Quarter: 2008Q3

REPORT INFORMATION
  Report Type: 
  Country: None (occurrence: None)
  Receive Date: 20080814
  Receipt Date: 20080802
  Transmission Date: 20090109
  Serious: Yes (Death, Other)
  Sender: FDA-Public Use
  Company Number: AT-BAYER-200823924GPV

PATIENT

DRUGS (8)
  1. ALEMTUZUMAB [Suspect]
     Indication: IMMUNOSUPPRESSION
     Route: 042
  2. ALEMTUZUMAB [Suspect]
     Dosage: TOTAL DAILY DOSE: 20 MG
     Route: 042
  3. METHYLPREDNISOLONE [Suspect]
     Indication: DRUG TOXICITY PROPHYLAXIS
     Route: 042
  4. METHYLPREDNISOLONE [Suspect]
     Dosage: TOTAL DAILY DOSE: 250 MG
     Route: 042
  5. TACROLIMUS [Suspect]
     Indication: IMMUNOSUPPRESSION
     Route: 065
  6. TRIMETHOPRIM-SULPHAMETHOXAZOLE [Concomitant]
     Indication: INFECTION PROPHYLAXIS
     Route: 065
  7. GANCICLOVIR [Concomitant]
     Indication: ANTIVIRAL PROPHYLAXIS
     Route: 048
  8. VALGANCICLOVIR HCL [Concomitant]
     Indication: ANTIVIRAL PROPHYLAXIS
     Route: 048

REACTIONS (18)
  - BACTERIAL INFECTION [None]
  - BLOOD DISORDER [None]
  - CARDIOVASCULAR DISORDER [None]
  - CEREBRAL HAEMORRHAGE [None]
  - CYTOMEGALOVIRUS INFECTION [None]
  - DIABETES MELLITUS [None]
  - DIARRHOEA [None]
  - FOCAL GLOMERULOSCLEROSIS [None]
  - FUNGAL INFECTION [None]
  - GASTROINTESTINAL DISORDER [None]
  - HAEMATOTOXICITY [None]
  - HAEMOLYTIC URAEMIC SYNDROME [None]
  - HUMAN POLYOMAVIRUS INFECTION [None]
  - HYPERLIPIDAEMIA [None]
  - PROTEINURIA [None]
  - RENAL TUBULAR NECROSIS [None]
  - VIRAL INFECTION [None]
  - VOMITING [None]
